FAERS Safety Report 6712819-2 (Version None)
Quarter: 2010Q2

REPORT INFORMATION
  Report Type: 
  Country: None (occurrence: None)
  Receive Date: 20100506
  Receipt Date: 20100119
  Transmission Date: 20101027
  Serious: No
  Sender: FDA-Public Use
  Company Number: A0840290A

PATIENT
  Age: 51 Year
  Sex: Female

DRUGS (4)
  1. AUGMENTIN '125' [Suspect]
     Indication: EAR PAIN
     Route: 048
  2. STEROID [Suspect]
     Indication: EAR PAIN
     Route: 065
  3. PRILOSEC [Concomitant]
  4. LISINOPRIL [Concomitant]

REACTIONS (1)
  - DRUG INEFFECTIVE [None]
